FAERS Safety Report 17108553 (Version 2)
Quarter: 2019Q4

REPORT INFORMATION
  Report Type: Spontaneous
  Country: IT (occurrence: IT)
  Receive Date: 20191203
  Receipt Date: 20191226
  Transmission Date: 20200122
  Serious: Yes (Life-Threatening, Hospitalization, Other)
  Sender: FDA-Public Use
  Company Number: IT-PFIZER INC-2019516453

PATIENT
  Age: 59 Year
  Sex: Male

DRUGS (6)
  1. METHOTREXATE SODIUM. [Suspect]
     Active Substance: METHOTREXATE SODIUM
     Indication: PROPHYLAXIS AGAINST GRAFT VERSUS HOST DISEASE
     Dosage: 30 MG, UNK (30 MG DAY + 1 THEN 20 MG DAYS + 3 AND +6)
     Dates: start: 201803
  2. CYCLOSPORINE A [Suspect]
     Active Substance: CYCLOSPORINE
     Indication: PROPHYLAXIS AGAINST GRAFT VERSUS HOST DISEASE
     Dosage: 3 MG/KG, (CONTINUOUS INFUSION FROM DAY -1)
     Dates: start: 201803, end: 201804
  3. MICAFUNGIN. [Concomitant]
     Active Substance: MICAFUNGIN SODIUM
     Indication: ANTIFUNGAL PROPHYLAXIS
     Dosage: UNK
     Dates: start: 201803
  4. MORPHINE [Concomitant]
     Active Substance: MORPHINE
     Indication: PAIN
     Dosage: UNK (HIGH DOSES)
     Dates: start: 201803
  5. METHOTREXATE SODIUM. [Suspect]
     Active Substance: METHOTREXATE SODIUM
     Dosage: 20 MG, UNK(30 MG DAY + 1 THEN 20 MG DAYS + 3 AND +6)
     Dates: start: 201803
  6. MORPHINE [Concomitant]
     Active Substance: MORPHINE
     Indication: TRIGEMINAL NEURALGIA

REACTIONS (11)
  - Mycetoma mycotic [Recovered/Resolved]
  - Weight decreased [Recovered/Resolved]
  - Rhinocerebral mucormycosis [Recovered/Resolved]
  - Trigeminal neuralgia [Recovered/Resolved]
  - Cavernous sinus thrombosis [Recovered/Resolved]
  - VIth nerve paralysis [Recovered/Resolved]
  - Carotid artery thrombosis [Recovered/Resolved]
  - Ophthalmic vein thrombosis [Recovered/Resolved]
  - Sensory loss [Recovered/Resolved]
  - Brain abscess [Recovered/Resolved]
  - Vasogenic cerebral oedema [Recovered/Resolved]

NARRATIVE: CASE EVENT DATE: 2018
